FAERS Safety Report 19458798 (Version 2)
Quarter: 2021Q4

REPORT INFORMATION
  Report Type: Report from Study
  Country: US (occurrence: US)
  Receive Date: 20210624
  Receipt Date: 20211116
  Transmission Date: 20220304
  Serious: Yes (Hospitalization)
  Sender: FDA-Public Use
  Company Number: US-TAKEDA-US202032147

PATIENT
  Sex: Female

DRUGS (1)
  1. HUMAN IMMUNOGLOBULIN G [Suspect]
     Active Substance: HUMAN IMMUNOGLOBULIN G
     Indication: Primary immunodeficiency syndrome
     Dosage: 40 GRAM, EVERY 4 WK
     Route: 065

REACTIONS (11)
  - Cardiac disorder [Unknown]
  - Oedema [Unknown]
  - Large intestine polyp [Unknown]
  - Stress [Unknown]
  - Illness [Unknown]
  - Dyspnoea [Unknown]
  - Therapy interrupted [Unknown]
  - Insurance issue [Unknown]
  - Malaise [Unknown]
  - Cough [Unknown]
  - Fatigue [Unknown]
